FAERS Safety Report 10256759 (Version 1)
Quarter: 2014Q2

REPORT INFORMATION
  Report Type: Spontaneous
  Country: US (occurrence: US)
  Receive Date: 20140624
  Receipt Date: 20140624
  Transmission Date: 20141212
  Serious: No
  Sender: FDA-Public Use
  Company Number: US-009507513-1406USA005708

PATIENT
  Sex: Female

DRUGS (1)
  1. ASMANEX TWISTHALER [Suspect]
     Indication: ASTHMA
     Dosage: 440 MICROGRAM, QD
     Route: 055
     Dates: start: 20130802

REACTIONS (4)
  - Rash [Unknown]
  - Mouth swelling [Unknown]
  - Swollen tongue [Unknown]
  - Swelling face [Unknown]
